FAERS Safety Report 13322853 (Version 5)
Quarter: 2017Q2

REPORT INFORMATION
  Report Type: Spontaneous
  Country: JP (occurrence: JP)
  Receive Date: 20170309
  Receipt Date: 20170531
  Transmission Date: 20170830
  Serious: Yes (Hospitalization)
  Sender: FDA-Public Use
  Company Number: JP-ASTRAZENECA-2017SE23900

PATIENT
  Age: 27024 Day
  Sex: Female
  Weight: 67 kg

DRUGS (13)
  1. LASIX [Suspect]
     Active Substance: FUROSEMIDE
     Indication: ASCITES
     Route: 048
  2. PURSENNID [Concomitant]
     Active Substance: SENNOSIDES A AND B
     Indication: CIRRHOSIS ALCOHOLIC
     Route: 048
     Dates: start: 20150514
  3. MYSLEE [Concomitant]
     Active Substance: ZOLPIDEM TARTRATE
     Route: 048
  4. GASMOTIN [Concomitant]
     Active Substance: MOSAPRIDE CITRATE
     Indication: CIRRHOSIS ALCOHOLIC
     Route: 048
     Dates: start: 20161214
  5. MAGMITT [Concomitant]
     Active Substance: MAGNESIUM OXIDE
     Route: 048
  6. URSODEOXYCHOLIC ACID [Concomitant]
     Active Substance: URSODIOL
     Indication: CIRRHOSIS ALCOHOLIC
     Route: 048
  7. FERROUS SULFATE. [Concomitant]
     Active Substance: FERROUS SULFATE
     Route: 048
  8. NEXIUM [Suspect]
     Active Substance: ESOMEPRAZOLE MAGNESIUM
     Indication: GASTRIC ULCER
     Route: 048
     Dates: start: 20161226, end: 20170208
  9. MONILAC [Concomitant]
     Active Substance: LACTULOSE
     Indication: CIRRHOSIS ALCOHOLIC
     Route: 048
     Dates: start: 20150226
  10. OLOPATADINE HYDROCHLORIDE. [Concomitant]
     Active Substance: OLOPATADINE HYDROCHLORIDE
     Route: 048
     Dates: start: 20151006
  11. SPIRONOLACTONE. [Concomitant]
     Active Substance: SPIRONOLACTONE
     Indication: ASCITES
     Route: 048
     Dates: start: 20130123
  12. LIVACT [Concomitant]
     Active Substance: AMINO ACIDS
     Indication: CIRRHOSIS ALCOHOLIC
     Route: 048
     Dates: start: 20130123
  13. CELECOX [Concomitant]
     Active Substance: CELECOXIB
     Indication: CLAVICLE FRACTURE
     Route: 048
     Dates: start: 20161215

REACTIONS (4)
  - Faeces discoloured [Recovering/Resolving]
  - Diarrhoea [Recovering/Resolving]
  - Platelet count decreased [Recovering/Resolving]
  - Haemorrhage subcutaneous [Recovering/Resolving]

NARRATIVE: CASE EVENT DATE: 20170205
